APPROVED DRUG PRODUCT: DROXIDOPA
Active Ingredient: DROXIDOPA
Strength: 300MG
Dosage Form/Route: CAPSULE;ORAL
Application: A214217 | Product #003
Applicant: CHARTWELL RX SCIENCES LLC
Approved: May 5, 2022 | RLD: No | RS: No | Type: DISCN